FAERS Safety Report 13269192 (Version 1)
Quarter: 2017Q1

REPORT INFORMATION
  Report Type: Spontaneous
  Country: FR (occurrence: FR)
  Receive Date: 20170224
  Receipt Date: 20170224
  Transmission Date: 20170428
  Serious: Yes (Hospitalization)
  Sender: FDA-Public Use
  Company Number: FR-PFIZER INC-2017075951

PATIENT
  Age: 34 Year
  Sex: Female

DRUGS (3)
  1. CYTOTEC [Suspect]
     Active Substance: MISOPROSTOL
     Indication: ABORTION INDUCED
     Dosage: 200 UG, SINGLE
     Route: 048
     Dates: start: 20170123, end: 20170123
  2. DAFALGAN [Suspect]
     Active Substance: ACETAMINOPHEN
     Indication: ABORTION INDUCED
     Dosage: 1 G, SINGLE
     Route: 048
     Dates: start: 20170123, end: 20170123
  3. IBUPROFEN. [Suspect]
     Active Substance: IBUPROFEN
     Indication: ABORTION INDUCED
     Dosage: 200 MG, SINGLE
     Route: 048
     Dates: start: 20170123, end: 20170123

REACTIONS (6)
  - Dyspnoea [Recovered/Resolved]
  - Angioedema [Recovered/Resolved]
  - Urticaria [Recovered/Resolved]
  - Swelling face [Recovered/Resolved]
  - Lip swelling [Recovered/Resolved]
  - Product use issue [Recovered/Resolved]

NARRATIVE: CASE EVENT DATE: 20170123
